FAERS Safety Report 23467654 (Version 2)
Quarter: 2024Q1

REPORT INFORMATION
  Report Type: Spontaneous
  Country: NL (occurrence: NL)
  Receive Date: 20240201
  Receipt Date: 20240222
  Transmission Date: 20240409
  Serious: Yes (Hospitalization, Other)
  Sender: FDA-Public Use
  Company Number: NL-SUN PHARMACEUTICAL INDUSTRIES LTD-2024R1-429420

PATIENT
  Age: 8 Day
  Sex: Male
  Weight: 3.4 kg

DRUGS (1)
  1. ACETAMINOPHEN [Suspect]
     Active Substance: ACETAMINOPHEN
     Indication: Bronchiolitis
     Dosage: 92 MILLIGRAM/KILOGRAM
     Route: 042

REACTIONS (2)
  - Overdose [Recovering/Resolving]
  - Product administration error [Unknown]
